FAERS Safety Report 19526549 (Version 1)
Quarter: 2021Q3

REPORT INFORMATION
  Report Type: Spontaneous
  Country: US (occurrence: US)
  Receive Date: 20210713
  Receipt Date: 20210713
  Transmission Date: 20211014
  Serious: Yes (Other)
  Sender: FDA-Public Use
  Company Number: US-AMGEN-USASP2021104091

PATIENT
  Age: 39 Year
  Sex: Male

DRUGS (1)
  1. TALIMOGENE LAHERPAREPVEC [Suspect]
     Active Substance: TALIMOGENE LAHERPAREPVEC
     Indication: METASTATIC MALIGNANT MELANOMA
     Dosage: 4 MILLILITER, Q2WK (FOR 24 CYCLES)
     Route: 026

REACTIONS (2)
  - Metastases to lymph nodes [Recovered/Resolved]
  - Pseudolymphoma [Recovered/Resolved]
